FAERS Safety Report 21926987 (Version 1)
Quarter: 2023Q1

REPORT INFORMATION
  Report Type: Spontaneous
  Country: US (occurrence: None)
  Receive Date: 20230128
  Receipt Date: 20230128
  Transmission Date: 20230418
  Serious: No
  Sender: FDA-Public Use
  Company Number: None

PATIENT
  Age: 38 Year
  Sex: Male
  Weight: 117 kg

DRUGS (2)
  1. ALPRAZOLAM XR [Suspect]
     Active Substance: ALPRAZOLAM
     Indication: Anxiety
     Route: 048
  2. EZETIMIBE [Suspect]
     Active Substance: EZETIMIBE
     Indication: Low density lipoprotein increased
     Route: 048

REACTIONS (3)
  - Abnormal dreams [None]
  - Sleep terror [None]
  - Screaming [None]

NARRATIVE: CASE EVENT DATE: 20230123
